FAERS Safety Report 25625255 (Version 1)
Quarter: 2025Q3

REPORT INFORMATION
  Report Type: Other
  Country: GB (occurrence: GB)
  Receive Date: 20250731
  Receipt Date: 20250731
  Transmission Date: 20251020
  Serious: Yes (Other)
  Sender: GLENMARK
  Company Number: GB-MHRA-TPP25907534C7058074YC1752760823354

PATIENT
  Age: 80 Year
  Sex: Male
  Weight: 77 kg

DRUGS (7)
  1. DAPAGLIFLOZIN [Suspect]
     Active Substance: DAPAGLIFLOZIN
     Indication: Product used for unknown indication
     Dosage: 5 MILLIGRAM, QD (DOSAGE FORM: TABLET)
     Route: 065
     Dates: start: 20250304, end: 20250527
  2. Spikevax JN.1 [Concomitant]
     Indication: Product used for unknown indication
     Route: 030
     Dates: start: 2025, end: 2025
  3. FLUTICASONE FUROATE [Concomitant]
     Active Substance: FLUTICASONE FUROATE
     Indication: Ill-defined disorder
     Dosage: 2 DOSAGE FORM, QD (TWO SPRAYS TO BE USED IN EACH NOSTRIL ONCE A DAY )
     Route: 045
     Dates: start: 20250529, end: 20250530
  4. ATORVASTATIN [Concomitant]
     Active Substance: ATORVASTATIN
     Indication: Ill-defined disorder
     Dosage: UNK UNK, QD, ONE TO BE TAKEN EACH DAY
     Route: 065
     Dates: start: 20140205, end: 20250715
  5. SILDENAFIL [Concomitant]
     Active Substance: SILDENAFIL
     Indication: Ill-defined disorder
     Route: 065
     Dates: start: 20160223, end: 20250715
  6. Zerobase [Concomitant]
     Indication: Ill-defined disorder
     Dosage: UNK, BID (APPLY TWICE A DAY AS NEEDED)
     Route: 065
     Dates: start: 20160308, end: 20250715
  7. LOSARTAN [Concomitant]
     Active Substance: LOSARTAN
     Indication: Ill-defined disorder
     Dosage: UNK UNK, QD (ONE TO BE TAKEN EACH DAY  )
     Route: 065
     Dates: start: 20240412, end: 20250715

REACTIONS (2)
  - Genital swelling [Recovering/Resolving]
  - Genital erythema [Recovering/Resolving]
